FAERS Safety Report 6289072-X (Version None)
Quarter: 2009Q3

REPORT INFORMATION
  Report Type: 
  Country: None (occurrence: None)
  Receive Date: 20090728
  Receipt Date: 20090717
  Transmission Date: 20100115
  Serious: No
  Sender: FDA-Public Use
  Company Number: DSU-2009-01470

PATIENT
  Sex: Female

DRUGS (2)
  1. WELCHOL [Suspect]
     Indication: HYPERLIPIDAEMIA
     Dosage: 1875 MG (1875 M, QD), PER ORAL
     Route: 048
     Dates: start: 20090301, end: 20090401
  2. UNSPECIFIED CONCOMITANT MEDICATIONS [Concomitant]

REACTIONS (3)
  - DYSPHAGIA [None]
  - FOREIGN BODY TRAUMA [None]
  - PRODUCT SIZE ISSUE [None]
